FAERS Safety Report 17797433 (Version 2)
Quarter: 2020Q4

REPORT INFORMATION
  Report Type: Spontaneous
  Country: US (occurrence: US)
  Receive Date: 20200518
  Receipt Date: 20201208
  Transmission Date: 20210113
  Serious: No
  Sender: FDA-Public Use
  Company Number: US-SA-2020SA127652

PATIENT

DRUGS (1)
  1. DUPIXENT [Suspect]
     Active Substance: DUPILUMAB
     Indication: ECZEMA INFANTILE
     Dosage: 300 MG, QOW
     Route: 058

REACTIONS (2)
  - Tooth extraction [Unknown]
  - Dry eye [Unknown]

NARRATIVE: CASE EVENT DATE: 20200507
